FAERS Safety Report 7226930-3 (Version None)
Quarter: 2011Q1

REPORT INFORMATION
  Report Type: 
  Country: None (occurrence: None)
  Receive Date: 20110111
  Receipt Date: 20110111
  Transmission Date: 20110831
  Serious: No
  Sender: FDA-Public Use
  Company Number: None

PATIENT
  Sex: Female
  Weight: 90.7194 kg

DRUGS (2)
  1. STEROID [Concomitant]
  2. RECLAST [Suspect]
     Indication: OSTEOPOROSIS
     Dosage: ONCE YEARLY I.V. FIRST DOSE
     Route: 042
     Dates: start: 20101201

REACTIONS (7)
  - ACTIVITIES OF DAILY LIVING IMPAIRED [None]
  - PALPITATIONS [None]
  - OEDEMA PERIPHERAL [None]
  - HYPERHIDROSIS [None]
  - ASTHENIA [None]
  - CHILLS [None]
  - PAIN [None]
